FAERS Safety Report 11622881 (Version 1)
Quarter: 2015Q4

REPORT INFORMATION
  Report Type: Spontaneous
  Country: US (occurrence: US)
  Receive Date: 20151013
  Receipt Date: 20151013
  Transmission Date: 20160304
  Serious: No
  Sender: FDA-Public Use
  Company Number: US-JNJFOC-20140813779

PATIENT
  Age: 72 Year
  Sex: Female
  Weight: 102.06 kg

DRUGS (1)
  1. CHILDRENS TYLENOL [Suspect]
     Active Substance: ACETAMINOPHEN
     Indication: PAIN
     Dosage: 3-4 TEASPOONS DEPENDS 1-2 PER DAY
     Route: 048

REACTIONS (6)
  - Visual impairment [Unknown]
  - Product packaging issue [Unknown]
  - Product expiration date issue [Unknown]
  - Therapy change [Unknown]
  - Wrong drug administered [Unknown]
  - Product lot number issue [Unknown]
